FAERS Safety Report 9448765 (Version 1)
Quarter: 2013Q3

REPORT INFORMATION
  Report Type: Spontaneous
  Country: US (occurrence: US)
  Receive Date: 20130808
  Receipt Date: 20130808
  Transmission Date: 20140515
  Serious: Yes (Hospitalization, Other)
  Sender: FDA-Public Use
  Company Number: PHEH2013US016627

PATIENT
  Sex: Female

DRUGS (4)
  1. MYFORTIC [Suspect]
     Dosage: UNK
  2. CELLCEPT [Suspect]
     Dosage: UNK
  3. PROTONIX [Concomitant]
     Dosage: UNK
  4. LEVOTHYROXINE [Concomitant]
     Dosage: UNK

REACTIONS (2)
  - Transplant rejection [Unknown]
  - Diarrhoea [Not Recovered/Not Resolved]
